FAERS Safety Report 5004777-6 (Version None)
Quarter: 2006Q2

REPORT INFORMATION
  Report Type: 
  Country: None (occurrence: None)
  Receive Date: 20060517
  Receipt Date: 20051202
  Transmission Date: 20061013
  Serious: Yes (Death, Hospitalization, Other)
  Sender: FDA-Public Use
  Company Number: US-MERCK-0512USA00496

PATIENT
  Age: 73 Year
  Sex: Female
  Weight: 68 kg

DRUGS (2)
  1. VIOXX [Suspect]
     Indication: ARTHRITIS
     Route: 048
     Dates: start: 19990101, end: 20040111
  2. TYLENOL (CAPLET) [Concomitant]
     Route: 048

REACTIONS (29)
  - ABDOMINAL PAIN UPPER [None]
  - ADVERSE EVENT [None]
  - ANALGESIC DRUG LEVEL [None]
  - ARTHRITIS [None]
  - BACK PAIN [None]
  - BLOOD MAGNESIUM [None]
  - CARDIAC STRESS TEST [None]
  - CARDIO-RESPIRATORY ARREST [None]
  - CHEST DISCOMFORT [None]
  - DEATH [None]
  - DIZZINESS [None]
  - DRUG HYPERSENSITIVITY [None]
  - ELECTROCARDIOGRAM [None]
  - FALL [None]
  - GALLBLADDER DISORDER [None]
  - HOSPITALISATION [None]
  - HYPERTENSION [None]
  - HYPOTENSION [None]
  - INTESTINAL POLYP [None]
  - LEGAL PROBLEM [None]
  - MYOCARDIAL INFARCTION [None]
  - NAUSEA [None]
  - PAIN IN EXTREMITY [None]
  - POLYP [None]
  - SMOKER [None]
  - SPONDYLOLISTHESIS [None]
  - SURGERY [None]
  - THYROID DISORDER [None]
  - THYROIDECTOMY [None]
